FAERS Safety Report 17079517 (Version 1)
Quarter: 2019Q4

REPORT INFORMATION
  Report Type: Spontaneous
  Country: US (occurrence: US)
  Receive Date: 20191127
  Receipt Date: 20191127
  Transmission Date: 20200122
  Serious: No
  Sender: FDA-Public Use
  Company Number: US-UCBSA-2019026652

PATIENT
  Age: 28 Year
  Sex: Female
  Weight: 100 kg

DRUGS (1)
  1. LACOSAMIDE. [Suspect]
     Active Substance: LACOSAMIDE
     Indication: PARTIAL SEIZURES
     Dosage: 400MG IN MORNING, 300MG IN AFTERNOON, 400MG IN EVENING, 3X/DAY (TID)
     Route: 048
     Dates: start: 20100922

REACTIONS (3)
  - Off label use [Unknown]
  - Overdose [Unknown]
  - Maternal exposure before pregnancy [Unknown]

NARRATIVE: CASE EVENT DATE: 20100922
